FAERS Safety Report 12635754 (Version 9)
Quarter: 2018Q2

REPORT INFORMATION
  Report Type: Spontaneous
  Country: CA (occurrence: CA)
  Receive Date: 20160809
  Receipt Date: 20180604
  Transmission Date: 20180711
  Serious: Yes (Other)
  Sender: FDA-Public Use
  Company Number: CA-ROCHE-1809810

PATIENT
  Age: 54 Year
  Sex: Male

DRUGS (29)
  1. XOLAIR [Suspect]
     Active Substance: OMALIZUMAB
     Dosage: UNK
     Route: 058
     Dates: start: 201506
  2. XOLAIR [Suspect]
     Active Substance: OMALIZUMAB
     Dosage: UNK
     Route: 058
     Dates: start: 20160803
  3. XOLAIR [Suspect]
     Active Substance: OMALIZUMAB
     Dosage: UNK
     Route: 058
     Dates: start: 20161025
  4. ADVAIR HFA [Concomitant]
     Active Substance: FLUTICASONE PROPIONATE\SALMETEROL XINAFOATE
     Indication: PRODUCT USED FOR UNKNOWN INDICATION
     Dosage: UNK
     Route: 065
  5. XOLAIR [Suspect]
     Active Substance: OMALIZUMAB
     Dosage: UNK
     Route: 058
     Dates: start: 20140108
  6. XOLAIR [Suspect]
     Active Substance: OMALIZUMAB
     Dosage: UNK
     Route: 058
     Dates: start: 20170627
  7. XOLAIR [Suspect]
     Active Substance: OMALIZUMAB
     Dosage: UNK
     Route: 058
     Dates: start: 20140805
  8. XOLAIR [Suspect]
     Active Substance: OMALIZUMAB
     Dosage: UNK
     Route: 058
     Dates: start: 20160511
  9. XOLAIR [Suspect]
     Active Substance: OMALIZUMAB
     Route: 058
     Dates: start: 20161108
  10. SPIRIVA [Concomitant]
     Active Substance: TIOTROPIUM BROMIDE MONOHYDRATE
     Indication: PRODUCT USED FOR UNKNOWN INDICATION
     Dosage: UNK
     Route: 065
  11. SINGULAIR [Concomitant]
     Active Substance: MONTELUKAST SODIUM
     Indication: PRODUCT USED FOR UNKNOWN INDICATION
     Dosage: UNK
     Route: 065
  12. SALBUTAMOL [Concomitant]
     Active Substance: ALBUTEROL
     Indication: PRODUCT USED FOR UNKNOWN INDICATION
     Dosage: UNK
     Route: 065
  13. XOLAIR [Suspect]
     Active Substance: OMALIZUMAB
     Dosage: UNK
     Route: 058
     Dates: start: 20130612
  14. XOLAIR [Suspect]
     Active Substance: OMALIZUMAB
     Dosage: UNK
     Route: 058
     Dates: start: 2017
  15. XOLAIR [Suspect]
     Active Substance: OMALIZUMAB
     Route: 058
     Dates: start: 20180501
  16. XOLAIR [Suspect]
     Active Substance: OMALIZUMAB
     Dosage: UNK
     Route: 058
     Dates: start: 20130515
  17. XOLAIR [Suspect]
     Active Substance: OMALIZUMAB
     Dosage: UNK
     Route: 058
     Dates: start: 20160706
  18. XOLAIR [Suspect]
     Active Substance: OMALIZUMAB
     Dosage: UNK
     Route: 058
     Dates: start: 20170725
  19. XOLAIR [Suspect]
     Active Substance: OMALIZUMAB
     Dosage: UNK
     Route: 058
     Dates: start: 20160525
  20. XOLAIR [Suspect]
     Active Substance: OMALIZUMAB
     Dosage: UNK
     Route: 058
     Dates: start: 20161220
  21. XOLAIR [Suspect]
     Active Substance: OMALIZUMAB
     Dosage: UNK
     Route: 058
     Dates: start: 20170714
  22. XOLAIR [Suspect]
     Active Substance: OMALIZUMAB
     Indication: ASTHMA
     Route: 058
     Dates: start: 20101020
  23. XOLAIR [Suspect]
     Active Substance: OMALIZUMAB
     Dosage: UNK
     Route: 058
     Dates: start: 20160622
  24. XOLAIR [Suspect]
     Active Substance: OMALIZUMAB
     Dosage: UNK
     Route: 058
     Dates: start: 20161011
  25. XOLAIR [Suspect]
     Active Substance: OMALIZUMAB
     Dosage: UNK
     Route: 058
     Dates: start: 20170214
  26. XOLAIR [Suspect]
     Active Substance: OMALIZUMAB
     Dosage: UNK
     Route: 058
     Dates: start: 20170228
  27. XOLAIR [Suspect]
     Active Substance: OMALIZUMAB
     Dosage: UNK
     Route: 058
     Dates: start: 20130710
  28. XOLAIR [Suspect]
     Active Substance: OMALIZUMAB
     Dosage: UNK
     Route: 058
     Dates: start: 2016
  29. XOLAIR [Suspect]
     Active Substance: OMALIZUMAB
     Dosage: UNK
     Route: 058
     Dates: start: 20171128

REACTIONS (15)
  - Eczema [Unknown]
  - Myalgia [Unknown]
  - Grief reaction [Unknown]
  - Oropharyngeal pain [Unknown]
  - Blood pressure increased [Unknown]
  - Productive cough [Unknown]
  - Pruritus generalised [Unknown]
  - Weight decreased [Unknown]
  - Diarrhoea [Recovering/Resolving]
  - Heart rate increased [Unknown]
  - Arthralgia [Unknown]
  - Pain [Unknown]
  - Dyspnoea [Unknown]
  - Nausea [Recovering/Resolving]
  - Blood pressure decreased [Unknown]

NARRATIVE: CASE EVENT DATE: 20130515
